FAERS Safety Report 23500599 (Version 2)
Quarter: 2024Q1

REPORT INFORMATION
  Report Type: Report from Study
  Country: US (occurrence: US)
  Receive Date: 20240208
  Receipt Date: 20240304
  Transmission Date: 20240409
  Serious: No
  Sender: FDA-Public Use
  Company Number: US-AstraZeneca-CH-00557271A

PATIENT
  Sex: Female

DRUGS (9)
  1. STRENSIQ [Suspect]
     Active Substance: ASFOTASE ALFA
     Indication: Hypophosphatasia
     Dosage: 120 MILLIGRAM, TIW
     Route: 058
     Dates: start: 20231122
  2. METFORMIN [Suspect]
     Active Substance: METFORMIN HYDROCHLORIDE
     Indication: Polycystic ovaries
     Dosage: 1000 MILLIGRAM
     Route: 065
     Dates: start: 20231117
  3. IRON [Concomitant]
     Active Substance: IRON
     Indication: Supplementation therapy
     Dosage: UNK
     Route: 065
  4. TRIAMTERENE [Concomitant]
     Active Substance: TRIAMTERENE
     Indication: Meniere^s disease
     Dosage: UNK
     Route: 065
  5. VITAMINS [Concomitant]
     Active Substance: VITAMINS
     Indication: Product used for unknown indication
     Dosage: UNK
     Route: 065
  6. BERBERINE [Concomitant]
     Active Substance: BERBERINE
     Indication: Product used for unknown indication
     Dosage: UNK
     Route: 065
  7. MAGNESIUM [Concomitant]
     Active Substance: MAGNESIUM
     Indication: Product used for unknown indication
     Dosage: UNK
     Route: 065
  8. VITAMIN B2 [Concomitant]
     Active Substance: RIBOFLAVIN
     Indication: Product used for unknown indication
     Dosage: UNK
     Route: 065
  9. VITAMIN D [Concomitant]
     Active Substance: VITAMIN D NOS
     Indication: Product used for unknown indication
     Dosage: 25 MILLIGRAM, QW
     Route: 065

REACTIONS (3)
  - Migraine [Recovered/Resolved]
  - Illness [Recovered/Resolved]
  - Pain [Recovered/Resolved]
